FAERS Safety Report 17435855 (Version 3)
Quarter: 2020Q2

REPORT INFORMATION
  Report Type: Report from Study
  Country: None (occurrence: US)
  Receive Date: 20200219
  Receipt Date: 20200425
  Transmission Date: 20200713
  Serious: No
  Sender: FDA-Public Use
  Company Number: US-ABBVIE-19K-163-3191299-00

PATIENT
  Sex: Female

DRUGS (1)
  1. HUMIRA [Suspect]
     Active Substance: ADALIMUMAB
     Indication: RHEUMATOID ARTHRITIS
     Route: 058

REACTIONS (7)
  - Post-traumatic pain [Recovered/Resolved]
  - Ligament sprain [Recovered/Resolved]
  - Fall [Recovered/Resolved]
  - Arthritis [Recovered/Resolved]
  - Back pain [Recovered/Resolved]
  - Arthritis [Not Recovered/Not Resolved]
  - Musculoskeletal discomfort [Not Recovered/Not Resolved]

NARRATIVE: CASE EVENT DATE: 2019
